FAERS Safety Report 11282478 (Version 8)
Quarter: 2015Q3

REPORT INFORMATION
  Report Type: Report from Study
  Country: AT (occurrence: AT)
  Receive Date: 20150720
  Receipt Date: 20150925
  Transmission Date: 20151125
  Serious: Yes (Death, Hospitalization, Other)
  Sender: FDA-Public Use
  Company Number: AT-AMGEN-AUTCT2015071988

PATIENT
  Age: 44 Year
  Sex: Male

DRUGS (9)
  1. BLINATUMOMAB [Suspect]
     Active Substance: BLINATUMOMAB
     Indication: PHILADELPHIA CHROMOSOME POSITIVE
  2. HYDAL [Concomitant]
     Active Substance: HYDROMORPHONE HYDROCHLORIDE
     Indication: PRODUCT USED FOR UNKNOWN INDICATION
     Dosage: 1 MG, AS NECESSARY
     Route: 042
     Dates: start: 20150713, end: 201508
  3. G-CSF [Concomitant]
     Active Substance: GRANULOCYTE COLONY-STIMULATING FACTOR NOS
     Dosage: 48 MIC IU, AS NECESSARY
     Route: 042
     Dates: start: 201507, end: 201508
  4. DEXAMETHASONE. [Concomitant]
     Active Substance: DEXAMETHASONE
     Dosage: 4 MG, QWK
     Route: 037
     Dates: start: 20150706, end: 20150717
  5. CYTARABINE. [Concomitant]
     Active Substance: CYTARABINE
     Dosage: 40 MG, QWK
     Route: 037
     Dates: start: 20150706, end: 20150717
  6. MEXALEN [Concomitant]
     Active Substance: LUBIPROSTONE
     Indication: PRODUCT USED FOR UNKNOWN INDICATION
     Dosage: 500 MG, AS NECESSARY
     Route: 048
     Dates: start: 20150710, end: 201508
  7. PLATELETS [Concomitant]
     Active Substance: HUMAN PLATELET, ALLOGENIC
     Dosage: 1 DF, AS NECESSARY
     Route: 042
     Dates: start: 201507, end: 201508
  8. METHOTREXATE [Concomitant]
     Active Substance: METHOTREXATE
     Dosage: 15 MG, QWK
     Route: 037
     Dates: start: 20150706, end: 20150717
  9. BLINATUMOMAB [Suspect]
     Active Substance: BLINATUMOMAB
     Indication: ACUTE LYMPHOCYTIC LEUKAEMIA
     Dosage: 9 MUG, QD
     Route: 042
     Dates: start: 20150709, end: 20150730

REACTIONS (8)
  - Pneumonia [Recovered/Resolved]
  - Pulmonary oedema [Fatal]
  - Myocardial ischaemia [Fatal]
  - C-reactive protein increased [Not Recovered/Not Resolved]
  - Constipation [Recovered/Resolved]
  - Pleural effusion [Not Recovered/Not Resolved]
  - Disturbance in attention [Recovered/Resolved]
  - Pyrexia [Recovered/Resolved]

NARRATIVE: CASE EVENT DATE: 20150713
